FAERS Safety Report 9514936 (Version 2)
Quarter: 2014Q1

REPORT INFORMATION
  Report Type: Spontaneous
  Country: US (occurrence: None)
  Receive Date: 20130305
  Receipt Date: 20140306
  Transmission Date: 20141002
  Serious: Yes (Life-Threatening, Hospitalization, Other)
  Sender: FDA-Public Use
  Company Number: 163-21880-12122926

PATIENT
  Age: 75 Year
  Sex: Male

DRUGS (12)
  1. REVLIMID [Suspect]
     Indication: ACUTE MYELOID LEUKAEMIA
     Dosage: 50 MG, 2 IN 1 D, PO
     Route: 048
     Dates: start: 20121120, end: 20121210
  2. NUVIGIL (ARMODAFINIL) [Concomitant]
  3. FLUCONAZOLE (FLUCONAZOLE) [Concomitant]
  4. ACYCLOVIR (ACICLOVIR) (ACICLOVIR) [Concomitant]
  5. AMBIEN (ZOLPIDEM TARTRATE) [Concomitant]
  6. OXYCODONE (OXYCODONE) [Concomitant]
  7. PROSCAR (FINASTERIDE) [Concomitant]
  8. PEPCID (FAMOTIDINE) [Concomitant]
  9. DILTIAZEM (DILTIAZEM) [Concomitant]
  10. PLATELETS (PLATELETS) (INJECTION FOR INFUSION) [Concomitant]
  11. PACKED RED BLOOD CELLS (RED BLOOD CELLS, CONCENTRATED) (INJECTION FOR INFUSION) [Concomitant]
  12. PREDNISONE (PREDNISONE) [Concomitant]

REACTIONS (4)
  - Hip fracture [None]
  - Fall [None]
  - Respiratory failure [None]
  - Femoral neck fracture [None]
